FAERS Safety Report 5638060-2 (Version None)
Quarter: 2008Q1

REPORT INFORMATION
  Report Type: 
  Country: None (occurrence: None)
  Receive Date: 20080222
  Receipt Date: 20080222
  Transmission Date: 20080703
  Serious: Yes (Hospitalization)
  Sender: FDA-Public Use
  Company Number: None

PATIENT
  Sex: Female

DRUGS (1)
  1. OPTIVAR [Suspect]
     Indication: HYPERSENSITIVITY
     Dosage: ONCE  OPHTHALMIC  (DURATION: AS NEEDED - USED 1 DOSE --)
     Route: 047

REACTIONS (5)
  - ASTHENIA [None]
  - DIZZINESS [None]
  - HALLUCINATION [None]
  - VISION BLURRED [None]
  - WRONG DRUG ADMINISTERED [None]
